FAERS Safety Report 15003498 (Version 1)
Quarter: 2018Q2

REPORT INFORMATION
  Report Type: Report from Study
  Country: AE (occurrence: AE)
  Receive Date: 20180613
  Receipt Date: 20180613
  Transmission Date: 20180711
  Serious: Yes (Other)
  Sender: FDA-Public Use
  Company Number: AE-ROCHE-2135645

PATIENT

DRUGS (7)
  1. TRASTUZUMAB. [Suspect]
     Active Substance: TRASTUZUMAB
     Route: 042
  2. TRASTUZUMAB. [Suspect]
     Active Substance: TRASTUZUMAB
     Indication: HER-2 POSITIVE BREAST CANCER
     Route: 042
  3. PERTUZUMAB. [Suspect]
     Active Substance: PERTUZUMAB
     Route: 042
  4. DOCETAXEL. [Suspect]
     Active Substance: DOCETAXEL
     Indication: HER-2 POSITIVE BREAST CANCER
     Route: 042
  5. CARBOPLATIN. [Suspect]
     Active Substance: CARBOPLATIN
     Indication: HER-2 POSITIVE BREAST CANCER
     Route: 042
  6. PEGFILGRASTIM [Concomitant]
     Active Substance: PEGFILGRASTIM
     Route: 058
  7. PERTUZUMAB. [Suspect]
     Active Substance: PERTUZUMAB
     Indication: HER-2 POSITIVE BREAST CANCER
     Route: 042

REACTIONS (15)
  - Pyrexia [Unknown]
  - Dry eye [Unknown]
  - Diarrhoea [Unknown]
  - Left ventricular dysfunction [Unknown]
  - Rash [Unknown]
  - Cough [Unknown]
  - Myalgia [Unknown]
  - Cytopenia [Unknown]
  - Febrile neutropenia [Unknown]
  - Decreased appetite [Unknown]
  - Neuropathy peripheral [Unknown]
  - Ejection fraction decreased [Unknown]
  - Nausea [Unknown]
  - Fatigue [Unknown]
  - Mucosal inflammation [Unknown]
